FAERS Safety Report 17999762 (Version 1)
Quarter: 2020Q3

REPORT INFORMATION
  Report Type: Spontaneous
  Country: IT (occurrence: IT)
  Receive Date: 20200709
  Receipt Date: 20200709
  Transmission Date: 20201103
  Serious: Yes (Hospitalization)
  Sender: FDA-Public Use
  Company Number: IT-DRREDDYS-GER/ITL/20/0124696

PATIENT
  Age: 81 Year
  Sex: Male

DRUGS (7)
  1. THEO?DUR 300 MG COMPRESSE A RILASCIO PROLUNGATO [Concomitant]
     Indication: PRODUCT USED FOR UNKNOWN INDICATION
  2. REVLIMID 10 MG HARD CAPSULES [Concomitant]
     Indication: PLASMA CELL MYELOMA
     Route: 048
     Dates: start: 20191219
  3. PRADAXA [Interacting]
     Active Substance: DABIGATRAN ETEXILATE MESYLATE
     Indication: MYOCARDIAL ISCHAEMIA
     Route: 048
     Dates: start: 20181116
  4. AMIODAR 200 MG COMPRESSE [Concomitant]
     Indication: PRODUCT USED FOR UNKNOWN INDICATION
  5. CLOPIDOGREL [Suspect]
     Active Substance: CLOPIDOGREL BISULFATE
     Indication: MYOCARDIAL ISCHAEMIA
     Route: 048
     Dates: start: 20181116
  6. DELTACORTENE 5 MG COMPRESSE [Concomitant]
     Active Substance: PREDNISONE
     Indication: AUTOINFLAMMATORY DISEASE
     Route: 048
     Dates: start: 20191219
  7. AVODART [Concomitant]
     Active Substance: DUTASTERIDE
     Indication: PRODUCT USED FOR UNKNOWN INDICATION

REACTIONS (3)
  - Swelling [Recovering/Resolving]
  - Drug interaction [Recovering/Resolving]
  - Haematoma [Recovering/Resolving]

NARRATIVE: CASE EVENT DATE: 20200509
